FAERS Safety Report 6933333-5 (Version None)
Quarter: 2010Q3

REPORT INFORMATION
  Report Type: 
  Country: None (occurrence: None)
  Receive Date: 20100820
  Receipt Date: 20100811
  Transmission Date: 20110219
  Serious: Yes (Disabling)
  Sender: FDA-Public Use
  Company Number: CA-BAYER-201030622NA

PATIENT
  Age: 45 Year
  Sex: Female
  Weight: 47 kg

DRUGS (5)
  1. MIRENA [Suspect]
     Indication: PRODUCT USED FOR UNKNOWN INDICATION
     Dosage: FREQUENCY: CONTINUOUS
     Route: 015
  2. NOVO-VENLAFAXINE [Concomitant]
     Indication: PRODUCT USED FOR UNKNOWN INDICATION
     Route: 048
  3. PMS-CLONAZEPAM [Concomitant]
     Indication: PRODUCT USED FOR UNKNOWN INDICATION
     Route: 048
  4. PMS-CLONAZEPAM [Concomitant]
     Route: 048
  5. RAN-ZOPICLONE [Concomitant]
     Indication: PRODUCT USED FOR UNKNOWN INDICATION
     Route: 048

REACTIONS (21)
  - ABDOMINAL PAIN [None]
  - BACK PAIN [None]
  - BREAST PAIN [None]
  - BRONCHITIS [None]
  - DEPRESSION [None]
  - DYSMENORRHOEA [None]
  - FATIGUE [None]
  - GINGIVAL PAIN [None]
  - HEADACHE [None]
  - MENORRHAGIA [None]
  - MENSTRUATION IRREGULAR [None]
  - MOOD ALTERED [None]
  - MUSCLE SPASMS [None]
  - NAIL DISCOLOURATION [None]
  - PALPITATIONS [None]
  - RHINITIS [None]
  - SYNOVIAL CYST [None]
  - URINARY TRACT INFECTION [None]
  - VAGINAL ODOUR [None]
  - VULVOVAGINAL PRURITUS [None]
  - WEIGHT INCREASED [None]
